FAERS Safety Report 24924470 (Version 1)
Quarter: 2025Q1

REPORT INFORMATION
  Report Type: Spontaneous
  Country: US (occurrence: US)
  Receive Date: 20250204
  Receipt Date: 20250204
  Transmission Date: 20250409
  Serious: No
  Sender: BIOGEN
  Company Number: US-BIOGEN-2025BI01298712

PATIENT
  Age: 58 Year
  Sex: Female

DRUGS (1)
  1. TYSABRI [Suspect]
     Active Substance: NATALIZUMAB
     Indication: Multiple sclerosis
     Route: 050
     Dates: start: 20180205, end: 20241202

REACTIONS (6)
  - Vein collapse [Unknown]
  - Allergy to metals [Unknown]
  - Multiple sclerosis relapse [Unknown]
  - Blood glucose increased [Unknown]
  - Limb crushing injury [Unknown]
  - Food intolerance [Unknown]

NARRATIVE: CASE EVENT DATE: 20250101
